FAERS Safety Report 4879800-X (Version None)
Quarter: 2006Q1

REPORT INFORMATION
  Report Type: 
  Country: None (occurrence: None)
  Receive Date: 20060111
  Receipt Date: 20051226
  Transmission Date: 20060701
  Serious: Yes (Hospitalization)
  Sender: FDA-Public Use
  Company Number: 108619ISR

PATIENT
  Age: 4 Year
  Sex: Female

DRUGS (13)
  1. VINCRISTINE [Suspect]
     Dosage: 1 MILLIGRAM, INTRAVENOUS (NOS)
     Route: 042
     Dates: start: 20050907, end: 20050928
  2. METHOTREXATE [Suspect]
     Dosage: INTRATHECAL
     Route: 037
     Dates: start: 20050831, end: 20051007
  3. METHOTREXATE [Suspect]
     Dosage: 6 TABLET QD, ORAL
     Route: 048
     Dates: start: 20051013
  4. DAUNORUBICIN HYDROCHLORIDE [Suspect]
     Dosage: 26 MILLIGRAM, INTRAVENOUS NOS
     Route: 042
     Dates: start: 20050921, end: 20050928
  5. ASPARAGINASE [Suspect]
     Dosage: INTRAVENOUS (NOS)
     Route: 042
     Dates: start: 20050909, end: 20050928
  6. PAROXETINE HYDROCHLORIDE [Suspect]
     Dosage: ORAL
     Route: 048
     Dates: start: 20050831, end: 20051015
  7. DEXAMETHASONE SODIUM PHOSPHATE [Concomitant]
  8. MERCAPTOPURINE [Concomitant]
  9. BACTRIM [Concomitant]
  10. CODEINE [Concomitant]
  11. BICARBONATE [Concomitant]
  12. AMPHOTERICIN B [Concomitant]
  13. ELUDRIL [Concomitant]

REACTIONS (10)
  - AREFLEXIA [None]
  - BLINDNESS [None]
  - BLOOD PRESSURE DECREASED [None]
  - COMA [None]
  - CONSTIPATION [None]
  - CONVULSION [None]
  - HEART RATE INCREASED [None]
  - LEUKOENCEPHALOPATHY [None]
  - LOSS OF CONSCIOUSNESS [None]
  - MALAISE [None]
